FAERS Safety Report 12406746 (Version 1)
Quarter: 2016Q2

REPORT INFORMATION
  Report Type: Spontaneous
  Country: US (occurrence: None)
  Receive Date: 20160525
  Receipt Date: 20160525
  Transmission Date: 20160815
  Serious: Yes (Other)
  Sender: FDA-Public Use
  Company Number: None

PATIENT
  Age: 34 Year
  Sex: Female
  Weight: 68 kg

DRUGS (1)
  1. TERBUTALINE, 1 MG/ML [Suspect]
     Active Substance: TERBUTALINE
     Indication: DRUG THERAPY
     Route: 040
     Dates: start: 20160518

REACTIONS (3)
  - Accidental overdose [None]
  - Product selection error [None]
  - Heart rate increased [None]

NARRATIVE: CASE EVENT DATE: 20160518
